FAERS Safety Report 4882528-3 (Version None)
Quarter: 2006Q1

REPORT INFORMATION
  Report Type: 
  Country: None (occurrence: None)
  Receive Date: 20060113
  Receipt Date: 20060108
  Transmission Date: 20060701
  Serious: Yes (Other)
  Sender: FDA-Public Use
  Company Number: 2006003666

PATIENT
  Sex: Female

DRUGS (1)
  1. DRAMAMINE [Suspect]
     Dosage: 2 PACKAGES OF DRAMAMINE, ORAL
     Route: 048
     Dates: start: 20060108, end: 20060108

REACTIONS (1)
  - HALLUCINATION [None]
